FAERS Safety Report 9988824 (Version 1)
Quarter: 2014Q1

REPORT INFORMATION
  Report Type: Spontaneous
  Country: IE (occurrence: IE)
  Receive Date: 20140310
  Receipt Date: 20140310
  Transmission Date: 20141002
  Serious: Yes (Hospitalization)
  Sender: FDA-Public Use
  Company Number: IE-JNJFOC-20140216918

PATIENT
  Sex: Female

DRUGS (2)
  1. DUROGESIC DTRANS [Suspect]
     Indication: SPINAL DISORDER
     Route: 062
     Dates: start: 201312
  2. DUROGESIC DTRANS [Suspect]
     Indication: SPINAL DISORDER
     Route: 062
     Dates: start: 201312

REACTIONS (4)
  - Drug withdrawal syndrome [Not Recovered/Not Resolved]
  - Tremor [Not Recovered/Not Resolved]
  - Brain injury [Unknown]
  - Off label use [Unknown]
